FAERS Safety Report 17283223 (Version 8)
Quarter: 2021Q4

REPORT INFORMATION
  Report Type: Spontaneous
  Country: US (occurrence: US)
  Receive Date: 20200117
  Receipt Date: 20211028
  Transmission Date: 20220303
  Serious: Yes (Hospitalization, Other)
  Sender: FDA-Public Use
  Company Number: US-PFIZER INC-2020022836

PATIENT
  Age: 62 Year
  Sex: Male

DRUGS (3)
  1. LYRICA [Suspect]
     Active Substance: PREGABALIN
     Indication: Pain
     Dosage: 50 MG, 2X/DAY
     Route: 048
  2. ALBUTEROL [Concomitant]
     Active Substance: ALBUTEROL
     Indication: Dyspnoea
     Dosage: UNK
  3. FLOMAX [Concomitant]
     Active Substance: TAMSULOSIN HYDROCHLORIDE
     Dosage: UNK, 2X/DAY

REACTIONS (6)
  - Nephrolithiasis [Unknown]
  - Diabetes mellitus [Unknown]
  - Hypoacusis [Unknown]
  - Lymphadenopathy [Unknown]
  - Urethral injury [Unknown]
  - Aphasia [Unknown]

NARRATIVE: CASE EVENT DATE: 20210601
